FAERS Safety Report 15208714 (Version 1)
Quarter: 2018Q3

REPORT INFORMATION
  Report Type: Spontaneous
  Country: US (occurrence: US)
  Receive Date: 20180629
  Receipt Date: 20180629
  Transmission Date: 20181010
  Serious: Yes (Hospitalization, Disabling)
  Sender: FDA-Public Use
  Company Number: None

PATIENT
  Age: 30 Year
  Sex: Female
  Weight: 83.46 kg

DRUGS (1)
  1. PARAGARD T 380A [Suspect]
     Active Substance: COPPER
     Dates: start: 20150212, end: 20171107

REACTIONS (11)
  - Anxiety [None]
  - Toxicity to various agents [None]
  - Dysgeusia [None]
  - Nausea [None]
  - Fatigue [None]
  - Mental disorder [None]
  - Impaired work ability [None]
  - Dizziness [None]
  - Panic attack [None]
  - Eczema [None]
  - Feeling abnormal [None]

NARRATIVE: CASE EVENT DATE: 20140606
